FAERS Safety Report 25997939 (Version 1)
Quarter: 2025Q4

REPORT INFORMATION
  Report Type: Spontaneous
  Country: CN (occurrence: CN)
  Receive Date: 20251105
  Receipt Date: 20251105
  Transmission Date: 20260118
  Serious: Yes (Other)
  Sender: CHEPLAPHARM
  Company Number: CN-CHEPLA-2025012468

PATIENT
  Age: 73 Year
  Sex: Female

DRUGS (3)
  1. OLANZAPINE [Suspect]
     Active Substance: OLANZAPINE
     Indication: Prophylaxis
     Dosage: AT NIGHT?DAILY DOSE: 1.25 MILLIGRAM
     Route: 048
     Dates: start: 20250905
  2. OLANZAPINE [Suspect]
     Active Substance: OLANZAPINE
     Indication: Prophylaxis
     Dosage: DOSE WAS INCREASED, AT NIGHT?DAILY DOSE: 2.5 MILLIGRAM
     Route: 048
     Dates: start: 20250908, end: 20250909
  3. OLANZAPINE [Suspect]
     Active Substance: OLANZAPINE
     Indication: Prophylaxis
     Dosage: DOSE WAS ADJUSTED, AT NIGHT DAILY?DAILY DOSE: 1.25 MILLIGRAM
     Route: 048
     Dates: start: 20250909

REACTIONS (2)
  - Hallucination [Recovered/Resolved]
  - Vertigo [Recovered/Resolved]

NARRATIVE: CASE EVENT DATE: 20250909
